FAERS Safety Report 9637717 (Version 2)
Quarter: 2013Q4

REPORT INFORMATION
  Report Type: Spontaneous
  Country: DE (occurrence: DE)
  Receive Date: 20131022
  Receipt Date: 20131022
  Transmission Date: 20140711
  Serious: Yes (Hospitalization)
  Sender: FDA-Public Use
  Company Number: DE-ROCHE-1269820

PATIENT
  Age: 57 Year
  Sex: Male
  Weight: 83 kg

DRUGS (5)
  1. PEGASYS [Suspect]
     Indication: HEPATITIS C
     Route: 058
     Dates: start: 20130117
  2. INCIVO [Suspect]
     Indication: HEPATITIS C
     Route: 048
     Dates: start: 20130117, end: 20130326
  3. REBETOL [Concomitant]
     Indication: HEPATITIS C
     Route: 048
     Dates: start: 20130117
  4. DOCITON [Concomitant]
     Indication: HYPERTENSION
     Route: 048
     Dates: start: 20130117
  5. TOREM [Concomitant]
     Indication: OEDEMA
     Route: 048
     Dates: start: 20130117

REACTIONS (2)
  - Rash [Recovered/Resolved]
  - Oedema [Recovered/Resolved]
